FAERS Safety Report 4615979-2 (Version None)
Quarter: 2005Q1

REPORT INFORMATION
  Report Type: 
  Country: None (occurrence: None)
  Receive Date: 20050318
  Receipt Date: 20050309
  Transmission Date: 20050727
  Serious: Yes (Other)
  Sender: FDA-Public Use
  Company Number: 2005001070

PATIENT
  Age: 31 Year
  Sex: Female

DRUGS (3)
  1. DEPO-PROVERA [Suspect]
     Indication: MENSTRUAL DISCOMFORT
     Dosage: SEE IMAGE
     Dates: start: 20010101, end: 20010101
  2. DEPO-PROVERA [Suspect]
     Indication: MENSTRUAL DISCOMFORT
     Dosage: SEE IMAGE
     Dates: start: 20050301, end: 20050301
  3. CLONAZEPAM [Concomitant]

REACTIONS (4)
  - CERVIX CARCINOMA [None]
  - CERVIX DISORDER [None]
  - PAPILLOMA VIRAL INFECTION [None]
  - VAGINAL HAEMORRHAGE [None]
